FAERS Safety Report 21867372 (Version 1)
Quarter: 2023Q1

REPORT INFORMATION
  Report Type: Spontaneous
  Country: FR (occurrence: FR)
  Receive Date: 20230116
  Receipt Date: 20230116
  Transmission Date: 20230417
  Serious: Yes (Life-Threatening)
  Sender: FDA-Public Use
  Company Number: None

PATIENT
  Age: 65 Year
  Sex: Female

DRUGS (3)
  1. VANCOMYCIN [Suspect]
     Active Substance: VANCOMYCIN
     Indication: Induction of anaesthesia
     Dosage: 1 DOSAGE FORM, TOTAL
     Route: 042
     Dates: start: 2016, end: 2016
  2. SUFENTANIL [Concomitant]
     Active Substance: SUFENTANIL
     Indication: Induction of anaesthesia
     Dosage: 1 DOSAGE FORM, TOTAL
     Route: 065
     Dates: start: 2016, end: 2016
  3. DIPRIVAN [Concomitant]
     Active Substance: PROPOFOL
     Indication: Induction of anaesthesia
     Dosage: 1 DOSAGE FORM, TOTAL
     Route: 065
     Dates: start: 2016, end: 2016

REACTIONS (2)
  - Anaphylactic shock [Recovered/Resolved]
  - Allergy test positive [Recovered/Resolved]

NARRATIVE: CASE EVENT DATE: 20160101
